FAERS Safety Report 5360312-4 (Version None)
Quarter: 2007Q2

REPORT INFORMATION
  Report Type: 
  Country: None (occurrence: None)
  Receive Date: 20070618
  Receipt Date: 20070607
  Transmission Date: 20071010
  Serious: Yes (Hospitalization)
  Sender: FDA-Public Use
  Company Number: US-AMGEN-US228168

PATIENT
  Sex: Male

DRUGS (17)
  1. SENSIPAR [Suspect]
     Indication: HYPERPARATHYROIDISM SECONDARY
     Route: 065
     Dates: start: 20060601
  2. ACTOS [Concomitant]
     Route: 065
  3. AMARYL [Concomitant]
     Route: 065
  4. ASPIRIN [Concomitant]
     Route: 065
  5. LANTUS [Concomitant]
     Route: 065
  6. NEURONTIN [Concomitant]
     Route: 065
  7. PHOSLO [Concomitant]
     Route: 065
  8. PLAVIX [Concomitant]
     Route: 065
  9. PROTONIX [Concomitant]
     Route: 065
  10. RENAGEL [Concomitant]
     Route: 065
  11. SYNTHROID [Concomitant]
     Route: 065
  12. VENOFER [Concomitant]
     Route: 065
  13. ALLEGRA [Concomitant]
     Route: 065
  14. ZEMPLAR [Concomitant]
     Route: 065
  15. ZOCOR [Concomitant]
     Route: 065
  16. VITAMIN CAP [Concomitant]
     Route: 065
  17. FISH OIL [Concomitant]
     Route: 065

REACTIONS (2)
  - CARPAL TUNNEL DECOMPRESSION [None]
  - PAIN IN EXTREMITY [None]
